FAERS Safety Report 25339061 (Version 2)
Quarter: 2025Q3

REPORT INFORMATION
  Report Type: Spontaneous
  Country: US (occurrence: US)
  Receive Date: 20250521
  Receipt Date: 20250826
  Transmission Date: 20251020
  Serious: No
  Sender: AMNEAL
  Company Number: US-AMNEAL PHARMACEUTICALS-2025-AMRX-01039

PATIENT
  Sex: Female
  Weight: 73.016 kg

DRUGS (1)
  1. CREXONT [Suspect]
     Active Substance: CARBIDOPA\LEVODOPA
     Indication: Product used for unknown indication
     Dosage: (87.5/350 MG) 2 CAPSULES, QID
     Route: 048

REACTIONS (2)
  - Eye disorder [Unknown]
  - On and off phenomenon [Unknown]
